FAERS Safety Report 20336044 (Version 1)
Quarter: 2022Q1

REPORT INFORMATION
  Report Type: Spontaneous
  Country: FI (occurrence: FI)
  Receive Date: 20220114
  Receipt Date: 20220114
  Transmission Date: 20220423
  Serious: Yes (Other)
  Sender: FDA-Public Use
  Company Number: FI-PFIZER INC-202101414322

PATIENT
  Age: 42 Year
  Sex: Male

DRUGS (1)
  1. VYNDAQEL [Suspect]
     Active Substance: TAFAMIDIS MEGLUMINE
     Dosage: UNK
     Dates: start: 20190122

REACTIONS (4)
  - Neuropathy peripheral [Unknown]
  - Disease progression [Unknown]
  - Condition aggravated [Unknown]
  - Hereditary motor and sensory neuropathy [Unknown]

NARRATIVE: CASE EVENT DATE: 20190601
